FAERS Safety Report 8207606-2 (Version None)
Quarter: 2012Q1

REPORT INFORMATION
  Report Type: 
  Country: None (occurrence: None)
  Receive Date: 20120314
  Receipt Date: 20120314
  Transmission Date: 20120608
  Serious: Yes (Hospitalization)
  Sender: FDA-Public Use
  Company Number: None

PATIENT

DRUGS (2)
  1. HALDOL DECONATE [Concomitant]
     Indication: SCHIZOPHRENIA
     Dosage: 250MG
     Route: 030
  2. HALDOL [Suspect]
     Indication: SCHIZOAFFECTIVE DISORDER
     Dosage: 200.0 MG
     Route: 030
     Dates: start: 20111001, end: 20120101

REACTIONS (5)
  - HOSPITALISATION [None]
  - THERAPY REGIMEN CHANGED [None]
  - UNEVALUABLE EVENT [None]
  - PRODUCT QUALITY ISSUE [None]
  - DRUG INEFFECTIVE [None]
